FAERS Safety Report 16678508 (Version 1)
Quarter: 2019Q3

REPORT INFORMATION
  Report Type: Spontaneous
  Country: US (occurrence: US)
  Receive Date: 20190807
  Receipt Date: 20190807
  Transmission Date: 20191004
  Serious: No
  Sender: FDA-Public Use
  Company Number: US-LYNE LABORATORIES INC.-2072849

PATIENT
  Age: 79 Year
  Sex: Female

DRUGS (1)
  1. TRIAMCINOLONE ACETONIDE. [Suspect]
     Active Substance: TRIAMCINOLONE ACETONIDE
     Indication: LIP PAIN
     Route: 048

REACTIONS (4)
  - Oral discomfort [Recovered/Resolved]
  - Lip pain [Recovered/Resolved]
  - Lip swelling [Recovered/Resolved]
  - Lip exfoliation [Recovered/Resolved]
